FAERS Safety Report 22638186 (Version 1)
Quarter: 2023Q2

REPORT INFORMATION
  Report Type: Spontaneous
  Country: US (occurrence: None)
  Receive Date: 20230623
  Receipt Date: 20230623
  Transmission Date: 20230722
  Serious: Yes (Other)
  Sender: FDA-Public Use
  Company Number: None

PATIENT
  Age: 68 Year
  Sex: Female
  Weight: 74.6 kg

DRUGS (1)
  1. BEZLOTOXUMAB [Suspect]
     Active Substance: BEZLOTOXUMAB
     Indication: Gastrointestinal disorder prophylaxis
     Dosage: 746 MG ONCE INTRAVENOUS DRIP?
     Route: 041
     Dates: start: 20230607, end: 20230607

REACTIONS (2)
  - Dizziness [None]
  - Infusion related reaction [None]

NARRATIVE: CASE EVENT DATE: 20230607
